FAERS Safety Report 9112418 (Version 1)
Quarter: 2013Q1

REPORT INFORMATION
  Report Type: Spontaneous
  Country: US (occurrence: US)
  Receive Date: 20130219
  Receipt Date: 20130219
  Transmission Date: 20140127
  Serious: No
  Sender: FDA-Public Use
  Company Number: US-BRISTOL-MYERS SQUIBB COMPANY-16415762

PATIENT
  Sex: Female

DRUGS (2)
  1. ORENCIA [Suspect]
     Dosage: INF:5?5TH INF ON 21FEB2012
     Route: 042
  2. METHOTREXATE [Concomitant]
     Dosage: STARTED IN JUL AND STOPPED

REACTIONS (1)
  - Pain [Not Recovered/Not Resolved]
